FAERS Safety Report 24026873 (Version 1)
Quarter: 2024Q2

REPORT INFORMATION
  Report Type: Spontaneous
  Country: US (occurrence: US)
  Receive Date: 20240628
  Receipt Date: 20240628
  Transmission Date: 20240716
  Serious: No
  Sender: FDA-Public Use
  Company Number: US-ROCHE-3561554

PATIENT
  Age: 63 Year
  Sex: Female
  Weight: 76.66 kg

DRUGS (2)
  1. ALECENSA [Suspect]
     Active Substance: ALECTINIB HYDROCHLORIDE
     Indication: Lung neoplasm malignant
     Dosage: TOTAL OF 600MG DAILY
     Route: 048
     Dates: start: 20230315
  2. ALECENSA [Suspect]
     Active Substance: ALECTINIB HYDROCHLORIDE
     Dosage: HIGHER DOSE OF ALECENSA FOR 8 DAYS
     Route: 048
     Dates: start: 20221101

REACTIONS (11)
  - Compression fracture [Not Recovered/Not Resolved]
  - Musculoskeletal stiffness [Unknown]
  - Neuralgia [Not Recovered/Not Resolved]
  - Emotional disorder [Recovered/Resolved]
  - Muscle fatigue [Not Recovered/Not Resolved]
  - Fatigue [Not Recovered/Not Resolved]
  - Musculoskeletal stiffness [Recovered/Resolved]
  - Gait disturbance [Recovered/Resolved]
  - Musculoskeletal stiffness [Recovered/Resolved]
  - Heart rate decreased [Recovered/Resolved]
  - Hearing disability [Not Recovered/Not Resolved]

NARRATIVE: CASE EVENT DATE: 20221101
